FAERS Safety Report 17943930 (Version 2)
Quarter: 2020Q3

REPORT INFORMATION
  Report Type: Spontaneous
  Country: RU (occurrence: RU)
  Receive Date: 20200625
  Receipt Date: 20200904
  Transmission Date: 20201103
  Serious: Yes (Other)
  Sender: FDA-Public Use
  Company Number: RU-SA-2020SA074389

PATIENT

DRUGS (7)
  1. TRANKVEZIPAM [Concomitant]
     Indication: DEPRESSION
     Dosage: UNK UNK, PRN
     Route: 048
  2. MICRASIM [Concomitant]
     Indication: DYSPEPSIA
     Dosage: 25000IU ? 3?4  TIMES A DAY (AFTER EACH MEAL)
     Route: 048
     Dates: start: 20200728
  3. PHENIBUT [Concomitant]
     Active Substance: 4-AMINO-3-PHENYLBUTYRIC ACID
     Indication: DEPRESSION
     Dosage: 1 DF, Q4D
     Route: 048
     Dates: start: 202007
  4. TOUJEO [Suspect]
     Active Substance: INSULIN GLARGINE
     Indication: TYPE 2 DIABETES MELLITUS
     Dosage: 25?26 IU, QD
     Route: 058
     Dates: start: 2019
  5. GLIMEPIRIDE. [Concomitant]
     Active Substance: GLIMEPIRIDE
     Indication: TYPE 2 DIABETES MELLITUS
     Dosage: 4 MG, QD
     Route: 048
  6. METFORMIN [Concomitant]
     Active Substance: METFORMIN HYDROCHLORIDE
     Indication: TYPE 2 DIABETES MELLITUS
     Dosage: IN THE MORNING 1000 MG, IN THE EVENING 750 MG
     Route: 048
  7. ESOMEPRAZOLE MAGNESIUM. [Concomitant]
     Active Substance: ESOMEPRAZOLE MAGNESIUM
     Indication: GASTRIC ULCER
     Dosage: 20 MG, BID
     Route: 048
     Dates: start: 20200728

REACTIONS (9)
  - Abdominal pain upper [Recovered/Resolved]
  - Pancreatitis chronic [Not Recovered/Not Resolved]
  - Depression [Not Recovered/Not Resolved]
  - Macular oedema [Unknown]
  - Hyperglycaemia [Recovered/Resolved]
  - Angle closure glaucoma [Unknown]
  - Gastrointestinal pain [Recovered/Resolved]
  - Asthenia [Not Recovered/Not Resolved]
  - Visual impairment [Unknown]

NARRATIVE: CASE EVENT DATE: 201910
